FAERS Safety Report 24889267 (Version 1)
Quarter: 2025Q1

REPORT INFORMATION
  Report Type: Spontaneous
  Country: CN (occurrence: CN)
  Receive Date: 20250127
  Receipt Date: 20250127
  Transmission Date: 20250409
  Serious: Yes (Other)
  Sender: SANDOZ
  Company Number: CN-SANDOZ-SDZ2025CN004649

PATIENT
  Age: 38 Year
  Sex: Male

DRUGS (3)
  1. MONTELUKAST SODIUM [Suspect]
     Active Substance: MONTELUKAST SODIUM
     Indication: Rhinitis allergic
     Dosage: 10 MG, QD,  IN THE EVENING
     Route: 048
     Dates: start: 20250114, end: 20250117
  2. COMPOUND LIQUORICE [Concomitant]
     Indication: Upper respiratory tract infection
     Route: 048
     Dates: start: 20250114, end: 20250117
  3. METHOXYPHENAMINE [Concomitant]
     Active Substance: METHOXYPHENAMINE
     Indication: Upper respiratory tract infection
     Route: 048
     Dates: start: 20250114, end: 20250117

REACTIONS (2)
  - Haematochezia [Recovering/Resolving]
  - Frequent bowel movements [Recovering/Resolving]

NARRATIVE: CASE EVENT DATE: 20250114
